FAERS Safety Report 7436603-X (Version None)
Quarter: 2011Q2

REPORT INFORMATION
  Report Type: 
  Country: None (occurrence: None)
  Receive Date: 20110418
  Receipt Date: 20110401
  Transmission Date: 20111010
  Serious: Yes (Death)
  Sender: FDA-Public Use
  Company Number: AE 2011-130

PATIENT
  Age: 39 Year
  Sex: Female

DRUGS (1)
  1. CLOZAPINE [Suspect]

REACTIONS (2)
  - SUDDEN DEATH [None]
  - TOXICITY TO VARIOUS AGENTS [None]
